APPROVED DRUG PRODUCT: CLINIMIX E 4.25/10 SULFITE FREE W/ ELECT IN DEXTROSE 10% W/ CALCIUM IN PLASTIC CONTAINER
Active Ingredient: AMINO ACIDS; CALCIUM CHLORIDE; DEXTROSE; MAGNESIUM CHLORIDE; POTASSIUM PHOSPHATE, DIBASIC; SODIUM ACETATE; SODIUM CHLORIDE
Strength: 4.25%;33MG/100ML;10GM/100ML;51MG/100ML;261MG/100ML;297MG/100ML;77MG/100ML
Dosage Form/Route: INJECTABLE;INJECTION
Application: N020678 | Product #009
Applicant: BAXTER HEALTHCARE CORP
Approved: Mar 26, 1997 | RLD: Yes | RS: Yes | Type: RX